FAERS Safety Report 12405568 (Version 1)
Quarter: 2016Q2

REPORT INFORMATION
  Report Type: Spontaneous
  Country: US (occurrence: None)
  Receive Date: 20160525
  Receipt Date: 20160525
  Transmission Date: 20160815
  Serious: Yes (Life-Threatening, Hospitalization, Disabling, Other)
  Sender: FDA-Public Use
  Company Number: None

PATIENT
  Sex: Male
  Weight: 68.04 kg

DRUGS (1)
  1. ACCUTANE [Suspect]
     Active Substance: ISOTRETINOIN

REACTIONS (8)
  - Hair disorder [None]
  - Crohn^s disease [None]
  - Head injury [None]
  - Pain [None]
  - General physical health deterioration [None]
  - Suicidal ideation [None]
  - Laceration [None]
  - Migraine [None]
